FAERS Safety Report 6928475-4 (Version None)
Quarter: 2010Q3

REPORT INFORMATION
  Report Type: 
  Country: None (occurrence: None)
  Receive Date: 20100812
  Receipt Date: 20100809
  Transmission Date: 20110219
  Serious: Yes (Other)
  Sender: FDA-Public Use
  Company Number: 20109012

PATIENT
  Age: 51 Year
  Sex: Male

DRUGS (1)
  1. BACLOFEN [Suspect]
     Indication: MUSCLE SPASTICITY
     Dosage: 55 MCG, DAILY, INTRATHECAL
     Route: 037

REACTIONS (1)
  - URINARY TRACT INFECTION [None]
